FAERS Safety Report 6930440-8 (Version None)
Quarter: 2010Q3

REPORT INFORMATION
  Report Type: 
  Country: None (occurrence: None)
  Receive Date: 20100813
  Receipt Date: 20100805
  Transmission Date: 20110219
  Serious: Yes (Other)
  Sender: FDA-Public Use
  Company Number: TUK2010A00226

PATIENT
  Age: 60 Year
  Sex: Male

DRUGS (3)
  1. ACTOPLUS MET [Suspect]
     Indication: TYPE 2 DIABETES MELLITUS
     Dosage: 15 MG (15 MG) ORAL
     Route: 048
     Dates: start: 20100219
  2. MICARDIS [Concomitant]
  3. LIPITOR [Concomitant]

REACTIONS (2)
  - MYALGIA [None]
  - PERIPHERAL COLDNESS [None]
